FAERS Safety Report 16528782 (Version 9)
Quarter: 2019Q3

REPORT INFORMATION
  Report Type: Report from Study
  Country: AU (occurrence: AU)
  Receive Date: 20190703
  Receipt Date: 20190930
  Transmission Date: 20191004
  Serious: Yes (Other)
  Sender: FDA-Public Use
  Company Number: AU-SHIRE-AU201919491

PATIENT

DRUGS (5)
  1. PANTOPRAZOLE [Concomitant]
     Active Substance: PANTOPRAZOLE
     Indication: PRODUCT USED FOR UNKNOWN INDICATION
  2. TEDUGLUTIDE [Suspect]
     Active Substance: TEDUGLUTIDE
     Dosage: 4 MILLIGRAM (5 MG VIAL, 0.4 ML DAILY), 1X/DAY:QD
     Route: 058
  3. SUSTAGEN [Concomitant]
     Indication: PRODUCT USED FOR UNKNOWN INDICATION
  4. TEDUGLUTIDE [Suspect]
     Active Substance: TEDUGLUTIDE
     Indication: PRODUCT USED FOR UNKNOWN INDICATION
     Dosage: 4 MILLIGRAM (5 MG VIAL, 0.4 ML DAILY), 1X/DAY:QD
     Route: 058
  5. TPN [AMINO ACIDS NOS;CARBOHYDRATES NOS;MINERALS NOS;VITAMINS NOS] [Concomitant]
     Indication: PRODUCT USED FOR UNKNOWN INDICATION

REACTIONS (21)
  - Diarrhoea [Unknown]
  - Constipation [Unknown]
  - Decreased appetite [Unknown]
  - Complication associated with device [Not Recovered/Not Resolved]
  - Urticaria [Unknown]
  - Flushing [Unknown]
  - Abdominal distension [Unknown]
  - Nasopharyngitis [Recovered/Resolved]
  - Hyperhidrosis [Recovering/Resolving]
  - Tongue dry [Unknown]
  - Condition aggravated [Unknown]
  - Peripheral swelling [Unknown]
  - Fatigue [Unknown]
  - Herpes zoster [Recovered/Resolved]
  - Tongue geographic [Unknown]
  - Dry mouth [Unknown]
  - Rash [Recovering/Resolving]
  - Tooth abscess [Unknown]
  - Dry skin [Unknown]
  - Haematochezia [Recovered/Resolved]
  - Abnormal faeces [Recovered/Resolved]
